FAERS Safety Report 10475434 (Version 1)
Quarter: 2014Q3

REPORT INFORMATION
  Report Type: Spontaneous
  Country: US (occurrence: None)
  Receive Date: 20140924
  Receipt Date: 20140924
  Transmission Date: 20150326
  Serious: Yes (Other)
  Sender: FDA-Public Use
  Company Number: None

PATIENT
  Age: 28 Year
  Sex: Female
  Weight: 72.58 kg

DRUGS (5)
  1. HYDROXYTRYPTOPHAN [Concomitant]
     Active Substance: OXITRIPTAN
  2. MUCINEX [Concomitant]
     Active Substance: GUAIFENESIN
  3. MVI [Concomitant]
     Active Substance: VITAMINS
  4. MONISTAT 3 [Suspect]
     Active Substance: MICONAZOLE NITRATE
     Indication: FUNGAL INFECTION
     Dosage: 3 ?AT BEDTIME?VAGINAL
     Route: 067
     Dates: start: 20140922, end: 20140923
  5. SCIATIA RELIEF [Concomitant]

REACTIONS (5)
  - Dysuria [None]
  - Swelling [None]
  - Pruritus [None]
  - Vulvovaginal discomfort [None]
  - Sleep disorder [None]

NARRATIVE: CASE EVENT DATE: 20140923
